FAERS Safety Report 25236556 (Version 1)
Quarter: 2025Q2

REPORT INFORMATION
  Report Type: Spontaneous
  Country: CN (occurrence: CN)
  Receive Date: 20250424
  Receipt Date: 20250424
  Transmission Date: 20250717
  Serious: Yes (Other)
  Sender: BAXTER
  Company Number: None

PATIENT
  Age: 57 Year
  Sex: Female
  Weight: 66 kg

DRUGS (4)
  1. CYCLOPHOSPHAMIDE [Suspect]
     Active Substance: CYCLOPHOSPHAMIDE
     Indication: Breast cancer female
     Dosage: 0.9 G, QD, IVGTT ST
     Route: 041
     Dates: start: 20250408, end: 20250408
  2. SODIUM CHLORIDE [Suspect]
     Active Substance: SODIUM CHLORIDE
     Dosage: 100 ML, QD (0.9% WITH CYCLOPHOSMAIDE)
     Route: 041
     Dates: start: 20250408, end: 20250408
  3. SODIUM CHLORIDE [Suspect]
     Active Substance: SODIUM CHLORIDE
     Dosage: 100 ML, QD (0.9% WITH EPIRUBICIN)
     Route: 041
     Dates: start: 20250408, end: 20250408
  4. EPIRUBICIN [Suspect]
     Active Substance: EPIRUBICIN
     Indication: Breast cancer female
     Dosage: 140 MG, QD, IVGTT ST
     Route: 041
     Dates: start: 20250408, end: 20250408

REACTIONS (1)
  - Nausea [Recovered/Resolved]

NARRATIVE: CASE EVENT DATE: 20250409
